FAERS Safety Report 6266084-3 (Version None)
Quarter: 2009Q3

REPORT INFORMATION
  Report Type: 
  Country: None (occurrence: None)
  Receive Date: 20090713
  Receipt Date: 20090701
  Transmission Date: 20100115
  Serious: Yes (Hospitalization, Other)
  Sender: FDA-Public Use
  Company Number: DE-ELI_LILLY_AND_COMPANY-DE200907000316

PATIENT

DRUGS (1)
  1. ZYPREXA [Suspect]
     Dosage: 40 MG, DAILY (1/D)
     Route: 064
     Dates: start: 20090101, end: 20090421

REACTIONS (5)
  - DRUG EXPOSURE DURING PREGNANCY [None]
  - DYSPHAGIA [None]
  - EXTRAPYRAMIDAL DISORDER [None]
  - HYPOTONIA [None]
  - OVERDOSE [None]
